FAERS Safety Report 7085947-2 (Version None)
Quarter: 2010Q4

REPORT INFORMATION
  Report Type: 
  Country: None (occurrence: None)
  Receive Date: 20101105
  Receipt Date: 20101025
  Transmission Date: 20110411
  Serious: Yes (Hospitalization)
  Sender: FDA-Public Use
  Company Number: GB-TEVA-253496ISR

PATIENT
  Sex: Male

DRUGS (12)
  1. PREDNISOLONE [Suspect]
     Indication: PROSTATE CANCER METASTATIC
     Route: 048
     Dates: start: 20090430
  2. ABIRATERONE ACETATE / PLACEBO - BLINDED [Suspect]
     Indication: PROSTATE CANCER METASTATIC
     Route: 048
     Dates: start: 20090106
  3. PARACETAMOL [Concomitant]
     Indication: BACK PAIN
     Route: 048
     Dates: start: 20080401
  4. TRIMETHOPRIM [Concomitant]
     Indication: URINARY TRACT INFECTION
     Dates: start: 20080521
  5. TRIMETHOPRIM [Concomitant]
     Dates: start: 20080529
  6. SPEKTRAMOX [Concomitant]
     Indication: URINARY TRACT INFECTION
     Route: 048
     Dates: start: 20100422
  7. AMLODIPINE [Concomitant]
     Indication: HYPERTENSION
     Route: 048
     Dates: start: 20060818
  8. LEUPRORELIN [Concomitant]
     Indication: HORMONE THERAPY
     Route: 030
     Dates: start: 20090106
  9. LEUPRORELIN [Concomitant]
     Indication: PROSTATE CANCER
     Dates: start: 20051219
  10. QUININE SULFATE [Concomitant]
     Indication: MUSCLE SPASMS
     Route: 048
  11. RANITIDINE HYDROCHLORIDE [Concomitant]
     Indication: PROPHYLAXIS
     Route: 048
     Dates: start: 20081219
  12. CARMELLOSE SODIUM [Concomitant]
     Route: 047
     Dates: start: 20091207

REACTIONS (1)
  - SEPSIS [None]
